FAERS Safety Report 4923155-9 (Version None)
Quarter: 2006Q1

REPORT INFORMATION
  Report Type: 
  Country: None (occurrence: None)
  Receive Date: 20060113
  Receipt Date: 20041130
  Transmission Date: 20060701
  Serious: Yes (Other)
  Sender: FDA-Public Use
  Company Number: HQWYE723101DEC04

PATIENT
  Age: 74 Year
  Sex: Female

DRUGS (9)
  1. PREMPRO [Suspect]
     Indication: MENOPAUSAL SYMPTOMS
  2. PREMPRO [Suspect]
     Indication: OSTEOPOROSIS
  3. PREMPRO [Suspect]
     Indication: PROPHYLAXIS
  4. MEDROXYPROGESTERONE [Suspect]
     Indication: MENOPAUSAL SYMPTOMS
  5. MEDROXYPROGESTERONE [Suspect]
     Indication: OSTEOPOROSIS
  6. MEDROXYPROGESTERONE [Suspect]
     Indication: PROPHYLAXIS
  7. PREMARIN [Suspect]
     Indication: MENOPAUSAL SYMPTOMS
  8. PREMARIN [Suspect]
     Indication: OSTEOPOROSIS
  9. PREMARIN [Suspect]
     Indication: PROPHYLAXIS

REACTIONS (1)
  - BREAST CANCER [None]
